FAERS Safety Report 8328180-6 (Version None)
Quarter: 2012Q2

REPORT INFORMATION
  Report Type: 
  Country: None (occurrence: None)
  Receive Date: 20120502
  Receipt Date: 20120426
  Transmission Date: 20120825
  Serious: Yes (Other)
  Sender: FDA-Public Use
  Company Number: US-PFIZER INC-2012104316

PATIENT
  Sex: Male

DRUGS (5)
  1. NORVASC [Concomitant]
     Indication: HYPERTENSION
     Dosage: 5 MG, 2X/DAY
  2. VIAGRA [Suspect]
     Indication: ERECTILE DYSFUNCTION
     Dosage: 50 MG, AS NEEDED
     Route: 048
     Dates: start: 20110101
  3. VIAGRA [Suspect]
     Dosage: 50 MG, THREE TABLETS
     Route: 048
  4. VIAGRA [Suspect]
     Dosage: 50 MG, TWO TABLETS
     Route: 048
  5. VIAGRA [Suspect]
     Dosage: 50 MG, FOUR TABLETS
     Route: 048

REACTIONS (2)
  - DRUG INEFFECTIVE [None]
  - BLOOD GLUCOSE INCREASED [None]
